FAERS Safety Report 8908794 (Version 1)
Quarter: 2012Q4

REPORT INFORMATION
  Report Type: 
  Country: US (occurrence: US)
  Receive Date: 20121113
  Receipt Date: 20121113
  Transmission Date: 20130627
  Serious: No
  Sender: FDA-Public Use
  Company Number: US-AMGEN-USASP2012011778

PATIENT
  Age: 53 Year
  Sex: Female
  Weight: 83.9 kg

DRUGS (5)
  1. ENBREL [Suspect]
     Indication: PRODUCT USED FOR UNKNOWN INDICATION
     Dosage: 50 mg, qwk
     Route: 058
  2. MEDROL                             /00049601/ [Concomitant]
     Dosage: 4 mg, UNK
  3. LEVOTHYROXIN [Concomitant]
     Dosage: 88 mug, UNK
  4. TRIAMTEREEN/HYDROCHLOOTTHIAZIDE [Concomitant]
  5. MOBIC [Concomitant]
     Dosage: 7.5 mg, UNK

REACTIONS (2)
  - Condition aggravated [Unknown]
  - Drug ineffective [Unknown]
